FAERS Safety Report 7450032-4 (Version None)
Quarter: 2011Q2

REPORT INFORMATION
  Report Type: 
  Country: None (occurrence: None)
  Receive Date: 20110502
  Receipt Date: 20091108
  Transmission Date: 20111010
  Serious: Yes (Hospitalization, Other)
  Sender: FDA-Public Use
  Company Number: US-BAYER-200938908NA

PATIENT
  Age: 57 Year
  Sex: Male
  Weight: 63 kg

DRUGS (25)
  1. INSULATARD [INSULIN HUMAN] [Concomitant]
     Dosage: 6 UNITS EVERY EVENING
  2. HEPARIN [Concomitant]
     Dosage: UNK
     Route: 042
     Dates: start: 20051215
  3. TRASYLOL [Suspect]
     Indication: CORONARY ARTERY BYPASS
     Dosage: PRIME
     Route: 042
     Dates: start: 20051215
  4. INDOMETHACIN [Concomitant]
     Dosage: 25 MG, QD
     Route: 048
  5. ANCEF [Concomitant]
     Dosage: 2 G, UNK
     Route: 042
  6. PROTAMINE SULFATE [Concomitant]
     Dosage: UNK
     Route: 042
     Dates: start: 20051215
  7. INOCOR [Concomitant]
     Dosage: UNK
     Dates: start: 20051215
  8. INSULATARD [INSULIN HUMAN] [Concomitant]
     Dosage: 30 UNITS EVERY MORNING
     Route: 058
  9. LASIX [Concomitant]
     Dosage: 40 MG EVERY 12 H
     Route: 042
     Dates: start: 20051209
  10. EPOGEN [Concomitant]
     Dosage: 10000 U, 0.5 ML
     Route: 048
     Dates: start: 20051209
  11. MANNITOL [Concomitant]
     Dosage: 100 MG, UNK
     Dates: start: 20051215
  12. PHOSLO [Concomitant]
     Dosage: 667 MG, WITH MEALS
     Route: 048
     Dates: start: 20051209
  13. TRASYLOL [Suspect]
     Dosage: 200 ML (500,000 UNITS/100 ML)
     Dates: start: 20051215
  14. LEVAQUIN [Concomitant]
     Dosage: 500 MG, QD
     Route: 048
  15. COLCHICINE [Concomitant]
     Dosage: 0.6 MG TWICE DAILY
     Route: 048
     Dates: start: 20051209
  16. ACETYLCYSTEINE [Concomitant]
     Dosage: 600 MG, BID
     Route: 048
     Dates: start: 20051209
  17. DECADRON [Concomitant]
     Dosage: 8 MG, UNK
     Dates: start: 20051215
  18. COREG [Concomitant]
     Dosage: 3.125 MG, BID
     Route: 048
     Dates: start: 20051209
  19. MUPIROCIN [Concomitant]
     Dosage: 2% OINTMENT IN EACH NOSTRIL NIGHT BEFORE AND MORNING OF SURGERY
     Route: 045
     Dates: start: 20051214
  20. BENADRYL [Concomitant]
     Dosage: 50 MG, UNK
     Dates: start: 20051215
  21. NEXIUM [Concomitant]
     Dosage: 40 MG, QD
     Route: 048
  22. ACETYLSALICYLIC ACID SRT [Concomitant]
     Dosage: 81 MG, QD
     Route: 048
     Dates: start: 20051209
  23. EPINEPHRINE [Concomitant]
     Dosage: UNK
     Route: 042
     Dates: start: 20051215
  24. LIDOCAINE [Concomitant]
     Dosage: 100 MG, UNK
     Dates: start: 20051215
  25. VERSED [Concomitant]
     Dosage: UNK
     Route: 042
     Dates: start: 20051215

REACTIONS (9)
  - PAIN [None]
  - RENAL IMPAIRMENT [None]
  - UNEVALUABLE EVENT [None]
  - RENAL FAILURE [None]
  - FEAR [None]
  - EMOTIONAL DISTRESS [None]
  - STRESS [None]
  - ANXIETY [None]
  - RENAL INJURY [None]
